FAERS Safety Report 20859596 (Version 1)
Quarter: 2022Q2

REPORT INFORMATION
  Report Type: Spontaneous
  Country: BR (occurrence: BR)
  Receive Date: 20220523
  Receipt Date: 20220523
  Transmission Date: 20220721
  Serious: Yes (Other)
  Sender: FDA-Public Use
  Company Number: BR-NOVOPROD-919160

PATIENT
  Age: 73 Year
  Sex: Female

DRUGS (8)
  1. XULTOPHY 100/3.6 [Suspect]
     Active Substance: INSULIN DEGLUDEC\LIRAGLUTIDE
     Dosage: 14 IU, QD
     Route: 065
  2. XULTOPHY 100/3.6 [Suspect]
     Active Substance: INSULIN DEGLUDEC\LIRAGLUTIDE
     Indication: Diabetes mellitus
     Dosage: 10 IU, QD (WITH HOME ADJUSTMENT OF 2 IU EVERY 3 DAYS IF FASTING AVERAGES ABOVE 140 MG/DL)
     Route: 065
     Dates: start: 20201125
  3. XULTOPHY 100/3.6 [Suspect]
     Active Substance: INSULIN DEGLUDEC\LIRAGLUTIDE
     Dosage: 14 IU, QD
     Route: 065
  4. XULTOPHY 100/3.6 [Suspect]
     Active Substance: INSULIN DEGLUDEC\LIRAGLUTIDE
     Dosage: 12 IU, QD (REDUCED DOSE)
     Route: 065
  5. XULTOPHY 100/3.6 [Suspect]
     Active Substance: INSULIN DEGLUDEC\LIRAGLUTIDE
     Dosage: 12 IU, QD
     Route: 065
  6. METFORMIN HYDROCHLORIDE [Concomitant]
     Active Substance: METFORMIN HYDROCHLORIDE
     Indication: Product used for unknown indication
     Dosage: 1000 MG, QD (500 MG 2 TABLETS/DAY)
     Route: 065
  7. VITAMIN D NOS [Concomitant]
     Active Substance: VITAMIN D NOS
     Indication: Product used for unknown indication
     Dosage: 50 IU, QW (50 IU 1X/WEEK PER 8 WEEKS)
     Route: 065
  8. NEUTROFER FOLICO [Concomitant]
     Indication: Product used for unknown indication
     Dosage: 1X/DAY
     Route: 065

REACTIONS (11)
  - Cataract operation [Unknown]
  - Carotid artery occlusion [Unknown]
  - Diastolic dysfunction [Unknown]
  - Left atrial enlargement [Unknown]
  - Aortic arteriosclerosis [Unknown]
  - Phantom limb syndrome [Unknown]
  - Insomnia [Unknown]
  - Arteriosclerosis coronary artery [Unknown]
  - Aortic dilatation [Unknown]
  - Blood glucose increased [Unknown]
  - Intentional product misuse [Unknown]

NARRATIVE: CASE EVENT DATE: 20210401
